FAERS Safety Report 6193090-X (Version None)
Quarter: 2009Q2

REPORT INFORMATION
  Report Type: 
  Country: None (occurrence: None)
  Receive Date: 20090514
  Receipt Date: 20080822
  Transmission Date: 20091009
  Serious: Yes (Other)
  Sender: FDA-Public Use
  Company Number: 2008AL004705

PATIENT
  Age: 63 Year
  Sex: Male

DRUGS (5)
  1. DIGOXIN [Suspect]
     Indication: ATRIAL FIBRILLATION
     Dosage: 0.25MG, DAILY, PO
     Route: 048
     Dates: start: 20051001, end: 20080508
  2. DILTIAZEM [Concomitant]
  3. WARFARIN SODIUM [Concomitant]
  4. LOVASTATIN [Concomitant]
  5. ZOLOFT [Concomitant]

REACTIONS (5)
  - DIARRHOEA [None]
  - INSOMNIA [None]
  - LETHARGY [None]
  - MENTAL DISORDER [None]
  - VOMITING [None]
